FAERS Safety Report 10783699 (Version 2)
Quarter: 2015Q3

REPORT INFORMATION
  Report Type: Report from Study
  Country: ZW (occurrence: ZW)
  Receive Date: 20150210
  Receipt Date: 20150825
  Transmission Date: 20151125
  Serious: Yes (Life-Threatening, Hospitalization, Other)
  Sender: FDA-Public Use
  Company Number: ZW-BRISTOL-MYERS SQUIBB COMPANY-BMS-2015-006543

PATIENT
  Age: 29 Year
  Sex: Female
  Weight: 54.2 kg

DRUGS (2)
  1. LAMIVUDINE/ZIDOVUDINE [Concomitant]
     Active Substance: LAMIVUDINE\ZIDOVUDINE
     Indication: HIV INFECTION
     Dosage: 1 DF, BID
     Route: 048
     Dates: start: 20080630
  2. EFAVIRENZ [Suspect]
     Active Substance: EFAVIRENZ
     Indication: HIV INFECTION
     Dosage: 600 MG, QD
     Route: 048
     Dates: start: 20080630

REACTIONS (3)
  - Dysfunctional uterine bleeding [Recovering/Resolving]
  - Polycystic ovaries [Unknown]
  - Anaemia [Unknown]

NARRATIVE: CASE EVENT DATE: 20141231
